FAERS Safety Report 13269709 (Version 4)
Quarter: 2017Q3

REPORT INFORMATION
  Report Type: Report from Study
  Country: US (occurrence: US)
  Receive Date: 20170224
  Receipt Date: 20170703
  Transmission Date: 20171127
  Serious: Yes (Hospitalization, Other)
  Sender: FDA-Public Use
  Company Number: US-GILEAD-2017-0259257

PATIENT
  Age: 52 Year
  Sex: Female

DRUGS (4)
  1. ADEMPAS [Concomitant]
     Active Substance: RIOCIGUAT
  2. AMBRISENTAN [Suspect]
     Active Substance: AMBRISENTAN
     Indication: PRODUCT USED FOR UNKNOWN INDICATION
     Dosage: 10 MG, QD
     Route: 065
  3. OXYGEN. [Concomitant]
     Active Substance: OXYGEN
  4. DILTIAZEM. [Concomitant]
     Active Substance: DILTIAZEM

REACTIONS (13)
  - Fluid retention [Unknown]
  - Unevaluable event [Not Recovered/Not Resolved]
  - Gastrointestinal haemorrhage [Recovered/Resolved]
  - Dyspnoea [Unknown]
  - Hypotension [Not Recovered/Not Resolved]
  - Feeling cold [Unknown]
  - Oxygen saturation decreased [Unknown]
  - Constipation [Not Recovered/Not Resolved]
  - Palpitations [Unknown]
  - Fatigue [Not Recovered/Not Resolved]
  - Exercise tolerance decreased [Unknown]
  - Dyspnoea exertional [Not Recovered/Not Resolved]
  - Dizziness [Not Recovered/Not Resolved]
